FAERS Safety Report 15346371 (Version 11)
Quarter: 2020Q4

REPORT INFORMATION
  Report Type: Report from Study
  Country: CN (occurrence: CN)
  Receive Date: 20180904
  Receipt Date: 20201105
  Transmission Date: 20210113
  Serious: Yes (Death, Hospitalization)
  Sender: FDA-Public Use
  Company Number: CN-ROCHE-2177975

PATIENT
  Age: 62 Year
  Sex: Male
  Weight: 58 kg

DRUGS (36)
  1. FOLIC ACID. [Concomitant]
     Active Substance: FOLIC ACID
     Dates: start: 20180702
  2. AZASETRON HYDROCHLORIDE [Concomitant]
     Active Substance: AZASETRON HYDROCHLORIDE
     Dates: start: 20180710, end: 20180712
  3. METOCLOPRAMIDE DIHYDROCHLORIDE [Concomitant]
     Dates: start: 20180815, end: 20180816
  4. OXYCODONE HYDROCHLORIDE. [Concomitant]
     Active Substance: OXYCODONE HYDROCHLORIDE
     Indication: PAIN
     Dates: start: 20190801
  5. MAGNESIUM ISOGLYCYRRHIZINATE [Concomitant]
     Active Substance: MAGNESIUM ISOGLYCYRRHIZINATE
     Dates: start: 20180810, end: 20180817
  6. RABEPRAZOLE SODIUM. [Concomitant]
     Active Substance: RABEPRAZOLE SODIUM
     Dates: start: 20180814, end: 20180817
  7. RABEPRAZOLE SODIUM. [Concomitant]
     Active Substance: RABEPRAZOLE SODIUM
     Dates: start: 20180709, end: 20180712
  8. POTASSIUM CHLORIDE. [Concomitant]
     Active Substance: POTASSIUM CHLORIDE
     Dates: start: 20180814, end: 20180817
  9. ENTECAVIR. [Concomitant]
     Active Substance: ENTECAVIR
     Indication: HEPATITIS B
     Dates: start: 2013
  10. GLUTATHIONE REDUCED [Concomitant]
     Dates: start: 20180810, end: 20180817
  11. FUROSEMIDE. [Concomitant]
     Active Substance: FUROSEMIDE
     Dates: start: 20180710, end: 20180710
  12. ATEZOLIZUMAB. [Suspect]
     Active Substance: ATEZOLIZUMAB
     Indication: NON-SMALL CELL LUNG CANCER STAGE IV
     Dosage: ON DAY 1 EVERY THREE WEEKS FOR 4 OR 6 CYCLES?DATE OF MOST RECENT DOSE OF ATEZOLIZUMAB PRIOR TO THE O
     Route: 042
     Dates: start: 20180710
  13. CISPLATIN. [Suspect]
     Active Substance: CISPLATIN
     Indication: NON-SMALL CELL LUNG CANCER STAGE IV
     Dosage: ON DAY 1 FOR 4 OR 6 CYCLES?DATE OF MOST RECENT DOSE OF CISPLATIN (0 MG) PRIOR TO THE ONSET OF FIRST
     Route: 042
     Dates: start: 20180710
  14. MOSAPRIDE CITRATE [Concomitant]
     Active Substance: MOSAPRIDE CITRATE
     Dates: start: 20180711, end: 20180711
  15. LEUCOGEN [Concomitant]
     Active Substance: LEUCOGEN
     Dates: start: 20180713, end: 20180719
  16. OXYCODONE HYDROCHLORIDE. [Concomitant]
     Active Substance: OXYCODONE HYDROCHLORIDE
     Dates: start: 20191119
  17. SODIUM VALPROATE [Concomitant]
     Active Substance: VALPROATE SODIUM
     Dates: start: 20180710, end: 20180712
  18. PEMETREXED. [Suspect]
     Active Substance: PEMETREXED
     Indication: NON-SMALL CELL LUNG CANCER STAGE IV
     Dosage: DATE OF MOST RECENT DOSE OF PEMETREXED (562 MG) PRIOR TO THE ONSET OF FIRST OCCURRENCE OF PLATELET C
     Route: 042
     Dates: start: 20180710
  19. RABEPRAZOLE SODIUM. [Concomitant]
     Active Substance: RABEPRAZOLE SODIUM
     Dates: start: 20191213
  20. ALPRAZOLAM. [Concomitant]
     Active Substance: ALPRAZOLAM
     Dates: start: 20180710, end: 20180712
  21. LACTULOSE. [Concomitant]
     Active Substance: LACTULOSE
     Dates: start: 20180710, end: 20180712
  22. MOSAPRIDE CITRATE [Concomitant]
     Active Substance: MOSAPRIDE CITRATE
     Dates: start: 20180815, end: 20180817
  23. LOW-MOLECULAR-WEIGHT HEPARIN CALCIUM [Concomitant]
     Active Substance: HEPARIN CALCIUM
     Dates: start: 20180707, end: 20180712
  24. AZASETRON HYDROCHLORIDE [Concomitant]
     Active Substance: AZASETRON HYDROCHLORIDE
     Indication: VOMITING
     Dates: start: 20180815, end: 20180817
  25. METOCLOPRAMIDE DIHYDROCHLORIDE [Concomitant]
     Dates: start: 20180710, end: 20180712
  26. SODIUM VALPROATE [Concomitant]
     Active Substance: VALPROATE SODIUM
     Indication: EPILEPSY
     Dates: start: 20191119
  27. VITAMIN B6 [Concomitant]
     Active Substance: PYRIDOXINE HYDROCHLORIDE
     Dates: start: 20180710, end: 20180711
  28. POLYENE PHOSPHATIDYLCHOLINE [Concomitant]
     Active Substance: PHOSPHOLIPID
     Dates: start: 20180810, end: 20180817
  29. PANTOPRAZOLE SODIUM. [Concomitant]
     Active Substance: PANTOPRAZOLE SODIUM
     Dates: start: 20180812, end: 20180816
  30. LACTULOSE. [Concomitant]
     Active Substance: LACTULOSE
     Dates: start: 20180815, end: 20180817
  31. ALPRAZOLAM. [Concomitant]
     Active Substance: ALPRAZOLAM
     Indication: INSOMNIA
     Dates: start: 20180815, end: 20180817
  32. GLUCOSE [Concomitant]
     Active Substance: DEXTROSE
     Dates: start: 20180815, end: 20180815
  33. ACLASTA [Concomitant]
     Active Substance: ZOLEDRONIC ACID
     Dates: start: 20180818, end: 20180818
  34. ACLASTA [Concomitant]
     Active Substance: ZOLEDRONIC ACID
     Dates: start: 20180711, end: 20180711
  35. RABEPRAZOLE SODIUM. [Concomitant]
     Active Substance: RABEPRAZOLE SODIUM
  36. SODIUM LACTATE RINGER^S [Concomitant]
     Dates: start: 20180710, end: 20180711

REACTIONS (4)
  - Platelet count decreased [Recovered/Resolved]
  - Platelet count decreased [Recovering/Resolving]
  - Death [Fatal]
  - Liver injury [Recovered/Resolved]

NARRATIVE: CASE EVENT DATE: 20180730
